FAERS Safety Report 18691165 (Version 2)
Quarter: 2022Q4

REPORT INFORMATION
  Report Type: Report from Study
  Country: FR (occurrence: None)
  Receive Date: 20210101
  Receipt Date: 20221108
  Transmission Date: 20230113
  Serious: Yes (Death)
  Sender: FDA-Public Use
  Company Number: FR-ROCHE-2742851

PATIENT
  Age: 61 Year
  Sex: Male

DRUGS (14)
  1. TOCILIZUMAB [Suspect]
     Active Substance: TOCILIZUMAB
     Indication: COVID-19
     Dosage: CONCENTRATE FOR SOLUTION FOR INFUSION 20 MG/ML
     Route: 042
     Dates: start: 20201030, end: 20201030
  2. TOCILIZUMAB [Suspect]
     Active Substance: TOCILIZUMAB
     Dosage: CONCENTRATE FOR SOLUTION FOR INFUSION 20 MG/ML
     Route: 042
     Dates: start: 20201102, end: 20201102
  3. DEXAMETHASONE [Suspect]
     Active Substance: DEXAMETHASONE
     Indication: COVID-19
     Dosage: 4 MG/ML
     Route: 042
     Dates: start: 20201030
  4. ROSUVASTATIN [Concomitant]
     Active Substance: ROSUVASTATIN
  5. CALCIUM CARBONATE [Concomitant]
     Active Substance: CALCIUM CARBONATE
  6. BISOPROLOL [Concomitant]
     Active Substance: BISOPROLOL
  7. AMIODARONE [Concomitant]
     Active Substance: AMIODARONE
  8. LANSOPRAZOLE [Concomitant]
     Active Substance: LANSOPRAZOLE
  9. WARFARIN SODIUM [Concomitant]
     Active Substance: WARFARIN SODIUM
  10. ALLOPURINOL [Concomitant]
     Active Substance: ALLOPURINOL
  11. LEVEMIR [Concomitant]
     Active Substance: INSULIN DETEMIR
  12. NOVORAPID [Concomitant]
     Active Substance: INSULIN ASPART
  13. FUROSEMIDE [Concomitant]
     Active Substance: FUROSEMIDE
  14. HEPSERA [Concomitant]
     Active Substance: ADEFOVIR DIPIVOXIL

REACTIONS (2)
  - Cardiac arrest [Fatal]
  - Shock [Fatal]

NARRATIVE: CASE EVENT DATE: 20201103
